FAERS Safety Report 17980280 (Version 3)
Quarter: 2020Q4

REPORT INFORMATION
  Report Type: Report from Study
  Country: US (occurrence: US)
  Receive Date: 20200703
  Receipt Date: 20201103
  Transmission Date: 20210113
  Serious: Yes (Death, Other)
  Sender: FDA-Public Use
  Company Number: NVSC2020US187166

PATIENT
  Age: 69 Year
  Sex: Female

DRUGS (3)
  1. KYMRIAH [Suspect]
     Active Substance: TISAGENLECLEUCEL
     Indication: DIFFUSE LARGE B-CELL LYMPHOMA
     Dosage: 2.6 E8 CAR-POSITIVE VIABLE T-CELLS
     Route: 041
     Dates: start: 20190925
  2. CYCLOPHOSPHAMIDE. [Concomitant]
     Active Substance: CYCLOPHOSPHAMIDE
     Indication: CHEMOTHERAPY
     Dosage: UNK
     Route: 065
  3. FLUDARABINE [Concomitant]
     Active Substance: FLUDARABINE PHOSPHATE
     Indication: CHEMOTHERAPY
     Dosage: UNK
     Route: 065

REACTIONS (14)
  - Enterococcal infection [Unknown]
  - Staphylococcal infection [Unknown]
  - Neurotoxicity [Not Recovered/Not Resolved]
  - Haematocrit decreased [Unknown]
  - Pyrexia [Unknown]
  - Neutropenia [Not Recovered/Not Resolved]
  - Cytokine release syndrome [Not Recovered/Not Resolved]
  - Cytopenia [Unknown]
  - Fungal infection [Fatal]
  - Hypoxia [Unknown]
  - Bronchopulmonary aspergillosis [Unknown]
  - Diffuse large B-cell lymphoma recurrent [Unknown]
  - Thrombocytopenia [Unknown]
  - Tremor [Unknown]

NARRATIVE: CASE EVENT DATE: 20200629
